FAERS Safety Report 6663343-7 (Version None)
Quarter: 2010Q2

REPORT INFORMATION
  Report Type: 
  Country: None (occurrence: None)
  Receive Date: 20100401
  Receipt Date: 20100330
  Transmission Date: 20101027
  Serious: Yes (Life-Threatening)
  Sender: FDA-Public Use
  Company Number: MX-NOVOPROD-306443

PATIENT
  Age: 76 Year
  Sex: Female
  Weight: 47.5 kg

DRUGS (3)
  1. LEVEMIR [Suspect]
     Indication: TYPE 2 DIABETES MELLITUS
     Dosage: 31 IU, QD
     Route: 058
     Dates: start: 20071004
  2. NOVORAPID FLEXPEN [Suspect]
     Indication: TYPE 2 DIABETES MELLITUS
     Dosage: 6-9 IU, QD
     Route: 058
     Dates: start: 20090823
  3. TRAMACET                           /01573601/ [Concomitant]
     Dosage: 100 MG, QD
     Route: 048
     Dates: start: 20100122

REACTIONS (2)
  - JAUNDICE EXTRAHEPATIC OBSTRUCTIVE [None]
  - PANCREATIC NEOPLASM [None]
